FAERS Safety Report 17268592 (Version 1)
Quarter: 2020Q1

REPORT INFORMATION
  Report Type: Report from Study
  Country: None (occurrence: CA)
  Receive Date: 20200114
  Receipt Date: 20200114
  Transmission Date: 20200409
  Serious: Yes (Other)
  Sender: FDA-Public Use
  Company Number: CA-ABBVIE-20K-028-3230309-00

PATIENT
  Sex: Female

DRUGS (1)
  1. HUMIRA [Suspect]
     Active Substance: ADALIMUMAB
     Indication: CROHN^S DISEASE
     Route: 058
     Dates: start: 20120214

REACTIONS (6)
  - Intestinal mass [Unknown]
  - Arthralgia [Unknown]
  - Peripheral swelling [Unknown]
  - Hernia repair [Unknown]
  - Pain in extremity [Unknown]
  - Intestinal resection [Unknown]

NARRATIVE: CASE EVENT DATE: 2015
